FAERS Safety Report 9123488 (Version 1)
Quarter: 2013Q1

REPORT INFORMATION
  Report Type: Spontaneous
  Country: US (occurrence: US)
  Receive Date: 20130227
  Receipt Date: 20130227
  Transmission Date: 20140127
  Serious: Yes (Hospitalization)
  Sender: FDA-Public Use
  Company Number: US-BAYER-2013-022374

PATIENT
  Age: 38 Year
  Sex: Female

DRUGS (2)
  1. YAZ [Suspect]
  2. NAPROXEN [Concomitant]
     Dosage: AS NEEDED
     Dates: start: 20101108

REACTIONS (1)
  - Deep vein thrombosis [Recovered/Resolved]
